FAERS Safety Report 10558956 (Version 2)
Quarter: 2015Q2

REPORT INFORMATION
  Report Type: Spontaneous
  Country: DE (occurrence: DE)
  Receive Date: 20141102
  Receipt Date: 20150519
  Transmission Date: 20150821
  Serious: Yes (Hospitalization, Other)
  Sender: FDA-Public Use
  Company Number: DE-AMGEN-DEUSP2014083386

PATIENT
  Age: 63 Year
  Sex: Female
  Weight: 68 kg

DRUGS (3)
  1. BONDRONAT                          /01304701/ [Concomitant]
     Active Substance: IBANDRONIC ACID
     Indication: DISEASE PROGRESSION
     Dosage: UNK
     Dates: start: 20110119
  2. XGEVA [Suspect]
     Active Substance: DENOSUMAB
     Indication: BREAST CANCER
     Dosage: 120 MG, Q4WK
     Route: 058
     Dates: start: 20131216, end: 20140922
  3. XELODA [Concomitant]
     Active Substance: CAPECITABINE
     Indication: BREAST CANCER METASTATIC
     Dosage: 1500 MG, BID
     Dates: start: 20111220, end: 20141124

REACTIONS (6)
  - Femur fracture [Recovering/Resolving]
  - Pathological fracture [Unknown]
  - Metastases to muscle [Unknown]
  - Bone pain [Unknown]
  - Lymphangiosis carcinomatosa [Unknown]
  - Malignant neoplasm progression [Unknown]

NARRATIVE: CASE EVENT DATE: 20140623
